FAERS Safety Report 7779272-1 (Version None)
Quarter: 2011Q3

REPORT INFORMATION
  Report Type: 
  Country: None (occurrence: None)
  Receive Date: 20110926
  Receipt Date: 20110921
  Transmission Date: 20111222
  Serious: Yes (Hospitalization)
  Sender: FDA-Public Use
  Company Number: US-MERCK-1106USA01823

PATIENT
  Age: 53 Year
  Sex: Female

DRUGS (23)
  1. FOSAMAX [Suspect]
     Indication: OSTEOPOROSIS
     Route: 048
     Dates: start: 19980101, end: 20081013
  2. FEMHRT [Concomitant]
     Route: 065
     Dates: start: 20010301, end: 20030731
  3. FOSAMAX [Suspect]
     Route: 048
     Dates: start: 19980101, end: 20000101
  4. FOSAMAX [Suspect]
     Route: 048
     Dates: start: 20000105, end: 20081013
  5. COMBIPATCH [Concomitant]
     Route: 065
     Dates: end: 20010220
  6. CITRACAL [Concomitant]
     Route: 065
     Dates: start: 19900101
  7. VITAMIN E [Concomitant]
     Route: 065
     Dates: start: 20060101
  8. ALENDRONATE SODIUM [Suspect]
     Route: 065
     Dates: start: 20080301, end: 20090501
  9. FOSAMAX [Suspect]
     Route: 048
     Dates: start: 20000105, end: 20081013
  10. GARLIC [Concomitant]
     Route: 065
  11. [THERAPY UNSPECIFIED] [Concomitant]
     Route: 065
  12. VITAMIN D (UNSPECIFIED) [Concomitant]
     Route: 065
     Dates: start: 20060101
  13. NAPROSYN [Concomitant]
     Indication: ARTHRITIS
     Route: 065
     Dates: start: 19990422, end: 20080801
  14. CENTRUM SILVER [Concomitant]
     Route: 065
     Dates: start: 20060101
  15. COSAMIN DS [Concomitant]
     Route: 065
  16. FLAXSEED [Concomitant]
     Route: 065
  17. FOSAMAX [Suspect]
     Route: 048
     Dates: start: 19980101, end: 20000101
  18. FOSAMAX PLUS D [Suspect]
     Indication: OSTEOPENIA
     Route: 048
     Dates: start: 20000105, end: 20081013
  19. OMEGA-3 MARINE TRIGLYCERIDES [Concomitant]
     Route: 065
  20. BIOGENESIS TRI MAGNESIUM [Concomitant]
     Route: 065
  21. FOSAMAX [Suspect]
     Indication: OSTEOPENIA
     Route: 048
     Dates: start: 19980101, end: 20081013
  22. VITAMIN D (UNSPECIFIED) [Concomitant]
     Route: 065
     Dates: start: 20060101
  23. ESTRATEST [Concomitant]
     Route: 065

REACTIONS (20)
  - MUSCULAR WEAKNESS [None]
  - MUSCLE STRAIN [None]
  - APPENDIX DISORDER [None]
  - SKULL FRACTURE [None]
  - LOW TURNOVER OSTEOPATHY [None]
  - FALL [None]
  - CONCUSSION [None]
  - PAIN IN EXTREMITY [None]
  - DRUG INEFFECTIVE [None]
  - FEMUR FRACTURE [None]
  - TRAUMATIC HAEMATOMA [None]
  - ADVERSE EVENT [None]
  - SKIN REACTION [None]
  - ARTHRALGIA [None]
  - MEDICAL DEVICE COMPLICATION [None]
  - ABDOMINAL DISCOMFORT [None]
  - NASAL CONGESTION [None]
  - CARPAL TUNNEL SYNDROME [None]
  - VITAMIN D DEFICIENCY [None]
  - HOT FLUSH [None]
